FAERS Safety Report 7284465-6 (Version None)
Quarter: 2011Q1

REPORT INFORMATION
  Report Type: 
  Country: None (occurrence: None)
  Receive Date: 20110209
  Receipt Date: 20110203
  Transmission Date: 20110831
  Serious: Yes (Hospitalization)
  Sender: FDA-Public Use
  Company Number: FR-PFIZER INC-2011025741

PATIENT
  Age: 58 Year
  Sex: Female

DRUGS (11)
  1. EFFERALGAN CODEINE [Concomitant]
  2. NEXIUM [Concomitant]
     Dosage: 20 UNK, 1X/DAY
  3. CORTANCYL [Concomitant]
     Dosage: 5 MG, 1X/DAY
  4. VALDOXAN [Concomitant]
     Dosage: 125 UNK, 2X/DAY
  5. HUMIRA [Suspect]
     Indication: RHEUMATOID ARTHRITIS
     Dosage: 1 DF, EVERY 15 DAYS
     Route: 058
     Dates: start: 20100401, end: 20110110
  6. SPIRIVA [Concomitant]
  7. EFFEXOR XR [Suspect]
     Indication: DEPRESSION
     Dosage: 37.5 MG, 2X/DAY
     Route: 048
     Dates: end: 20110111
  8. TEMESTA [Concomitant]
  9. COAPROVEL [Concomitant]
     Dosage: (MORNING)1 DF, 1X/DAY
  10. PROFENID [Concomitant]
     Dosage: 2 DF, UNK
  11. LEXOMIL [Concomitant]
     Dosage: 0.5 DF, 3X/DAY

REACTIONS (3)
  - INTERSTITIAL LUNG DISEASE [None]
  - CHRONIC OBSTRUCTIVE PULMONARY DISEASE [None]
  - EMPHYSEMA [None]
